FAERS Safety Report 6743954-0 (Version None)
Quarter: 2010Q2

REPORT INFORMATION
  Report Type: 
  Country: None (occurrence: None)
  Receive Date: 20100527
  Receipt Date: 20100518
  Transmission Date: 20101027
  Serious: Yes (Death, Hospitalization, Other)
  Sender: FDA-Public Use
  Company Number: US-AMGEN-QUU406464

PATIENT
  Sex: Male
  Weight: 70.8 kg

DRUGS (18)
  1. NPLATE [Suspect]
     Indication: IDIOPATHIC THROMBOCYTOPENIC PURPURA
     Dates: start: 20090604, end: 20091014
  2. CORTICOSTEROIDS [Concomitant]
     Dates: start: 20090526
  3. OXYCONTIN [Concomitant]
  4. NEURONTIN [Concomitant]
  5. PREDNISONE TAB [Concomitant]
  6. LASIX [Concomitant]
  7. FIORINAL [Concomitant]
  8. ZOLOFT [Concomitant]
  9. VANTIN [Concomitant]
  10. MULTI-VITAMINS [Concomitant]
  11. COLACE [Concomitant]
  12. SYNTHROID [Concomitant]
  13. LANOXIN [Concomitant]
  14. LIDODERM [Concomitant]
     Route: 062
  15. METOPROLOL [Concomitant]
  16. MULTIVITAMIN [Concomitant]
  17. VICODIN [Concomitant]
  18. XANAX [Concomitant]

REACTIONS (19)
  - ACUTE RESPIRATORY FAILURE [None]
  - ADRENAL INSUFFICIENCY [None]
  - ASPIRATION [None]
  - ATRIAL FIBRILLATION [None]
  - CLOSTRIDIUM DIFFICILE COLITIS [None]
  - COMPRESSION FRACTURE [None]
  - DEATH [None]
  - ECCHYMOSIS [None]
  - FAILURE TO THRIVE [None]
  - HYPOVOLAEMIA [None]
  - LEUKOCYTOSIS [None]
  - LYMPHADENOPATHY MEDIASTINAL [None]
  - METABOLIC ENCEPHALOPATHY [None]
  - OEDEMA PERIPHERAL [None]
  - PLEURAL EFFUSION [None]
  - PNEUMONIA [None]
  - PULMONARY GRANULOMA [None]
  - SEPSIS [None]
  - SICK SINUS SYNDROME [None]
